FAERS Safety Report 18265896 (Version 1)
Quarter: 2020Q3

REPORT INFORMATION
  Report Type: Report from Study
  Country: DE (occurrence: DE)
  Receive Date: 20200915
  Receipt Date: 20200915
  Transmission Date: 20201103
  Serious: Yes (Death, Other)
  Sender: FDA-Public Use
  Company Number: DE-AUROBINDO-AUR-APL-2015-03718

PATIENT
  Age: 61 Year
  Sex: Male

DRUGS (2)
  1. DIPHENHYDRAMINE. [Suspect]
     Active Substance: DIPHENHYDRAMINE
     Indication: PRODUCT USED FOR UNKNOWN INDICATION
     Dosage: 8.8 MICROGRAM/MILLILITER
     Route: 065
  2. DOXYLAMINE [Suspect]
     Active Substance: DOXYLAMINE
     Indication: PRODUCT USED FOR UNKNOWN INDICATION
     Dosage: 0.7 MICROGRAM/MILLILITER
     Route: 065

REACTIONS (5)
  - Toxicity to various agents [Fatal]
  - Brain oedema [Unknown]
  - Oedematous kidney [Unknown]
  - Completed suicide [Fatal]
  - Pulmonary oedema [Unknown]
